FAERS Safety Report 17424809 (Version 1)
Quarter: 2020Q1

REPORT INFORMATION
  Report Type: Spontaneous
  Country: FR (occurrence: FR)
  Receive Date: 20200217
  Receipt Date: 20200217
  Transmission Date: 20200409
  Serious: Yes (Other)
  Sender: FDA-Public Use
  Company Number: FR-BRISTOL-MYERS SQUIBB COMPANY-BMS-2020-012663

PATIENT
  Sex: Male

DRUGS (2)
  1. YERVOY [Suspect]
     Active Substance: IPILIMUMAB
     Indication: RENAL CANCER METASTATIC
     Dosage: UNK
     Route: 065
  2. OPDIVO [Suspect]
     Active Substance: NIVOLUMAB
     Indication: RENAL CANCER METASTATIC
     Dosage: UNK
     Route: 065

REACTIONS (1)
  - Facial paralysis [Unknown]
